FAERS Safety Report 20132682 (Version 1)
Quarter: 2021Q4

REPORT INFORMATION
  Report Type: Report from Study
  Country: ZA (occurrence: ZA)
  Receive Date: 20211130
  Receipt Date: 20211130
  Transmission Date: 20220303
  Serious: Yes (Hospitalization, Other)
  Sender: FDA-Public Use
  Company Number: ZA-NOVARTISPH-NVSC2021ZA239967

PATIENT
  Age: 55 Year
  Sex: Female

DRUGS (3)
  1. FINGOLIMOD HYDROCHLORIDE [Suspect]
     Active Substance: FINGOLIMOD HYDROCHLORIDE
     Indication: Multiple sclerosis
     Dosage: 0.5 MG, QD
     Route: 048
     Dates: start: 20210525
  2. DIBUCAINE HYDROCHLORIDE\PREDNISOLONE [Concomitant]
     Active Substance: DIBUCAINE HYDROCHLORIDE\PREDNISOLONE
     Indication: Product used for unknown indication
     Dosage: UNK
     Route: 065
  3. MOVICOL [Concomitant]
     Active Substance: POLYETHYLENE GLYCOL 3350\POTASSIUM CHLORIDE\SODIUM BICARBONATE\SODIUM CHLORIDE
     Indication: Product used for unknown indication
     Dosage: UNK
     Route: 065

REACTIONS (6)
  - Diverticulitis [Recovering/Resolving]
  - Inflammatory bowel disease [Recovering/Resolving]
  - Constipation [Unknown]
  - Weight decreased [Unknown]
  - Haemorrhoids [Unknown]
  - Headache [Unknown]

NARRATIVE: CASE EVENT DATE: 20211111
